FAERS Safety Report 14140858 (Version 2)
Quarter: 2017Q4

REPORT INFORMATION
  Report Type: Spontaneous
  Country: RO (occurrence: RO)
  Receive Date: 20171030
  Receipt Date: 20171104
  Transmission Date: 20180321
  Serious: Yes (Life-Threatening)
  Sender: FDA-Public Use
  Company Number: RO-AUROBINDO-AUR-APL-2017-42416

PATIENT
  Age: 60 Year
  Sex: Male

DRUGS (5)
  1. GABAPENTIN AUROBINDO [Suspect]
     Active Substance: GABAPENTIN
     Indication: HERPES ZOSTER
     Dosage: 300 MG, TWO TIMES A DAY
     Route: 048
     Dates: start: 20170907, end: 20170908
  2. CO PRENESSA [Concomitant]
     Indication: HYPERTENSION
     Route: 048
  3. MOTILIUM [Concomitant]
     Active Substance: DOMPERIDONE
     Indication: FUNCTIONAL GASTROINTESTINAL DISORDER
     Dosage: 10 MG, 3 TIMES A DAY
     Route: 048
  4. OMERAN [Concomitant]
     Indication: GASTRITIS
     Dosage: 20 MG, ONCE A DAY
     Route: 048
  5. BISOPROLOL [Concomitant]
     Active Substance: BISOPROLOL
     Indication: HYPERTENSION
     Dosage: 5 MG, TWO TIMES A DAY
     Route: 048
     Dates: start: 20170806, end: 20170907

REACTIONS (2)
  - Dyspepsia [Recovered/Resolved]
  - Balance disorder [Recovered/Resolved]

NARRATIVE: CASE EVENT DATE: 20170907
